FAERS Safety Report 9322494 (Version 3)
Quarter: 2014Q2

REPORT INFORMATION
  Report Type: Spontaneous
  Country: US (occurrence: US)
  Receive Date: 20130531
  Receipt Date: 20140520
  Transmission Date: 20141212
  Serious: Yes (Hospitalization)
  Sender: FDA-Public Use
  Company Number: PHHY2013US053426

PATIENT
  Age: 80 Year
  Sex: Male

DRUGS (5)
  1. OLANZAPINE [Suspect]
     Indication: BIPOLAR DISORDER
     Dosage: 5 MG, BID
  2. ASPIRIN [Concomitant]
  3. INSULIN [Concomitant]
  4. AMLODIPINE [Concomitant]
  5. DONEPEZIL [Concomitant]

REACTIONS (1)
  - Hypothermia [Recovering/Resolving]
